FAERS Safety Report 7108773-4 (Version None)
Quarter: 2010Q4

REPORT INFORMATION
  Report Type: 
  Country: None (occurrence: None)
  Receive Date: 20101117
  Receipt Date: 20101115
  Transmission Date: 20110411
  Serious: Yes (Hospitalization)
  Sender: FDA-Public Use
  Company Number: BE-B.I. PHARMACEUTICALS,INC./RIDGEFIELD-2010-BL-00473BL

PATIENT
  Sex: Female
  Weight: 75 kg

DRUGS (10)
  1. PRADAXA [Suspect]
     Indication: THROMBOSIS PROPHYLAXIS
     Dosage: 220 MG
     Route: 048
     Dates: start: 20100906, end: 20100921
  2. SIPRALEXA [Suspect]
     Dosage: 10 MG
     Route: 048
  3. DAFALGAN [Concomitant]
     Dosage: 4000 MG
     Route: 048
  4. PRAVASINE [Concomitant]
     Dosage: 40 MG
     Route: 048
  5. ASAFLOW [Concomitant]
     Dosage: 80 MG
     Route: 048
  6. SPASMOMEN [Concomitant]
     Dosage: 40 MG
     Route: 048
  7. ZANTAC [Concomitant]
     Dosage: 150 MG
     Route: 048
  8. PRETERAX [Concomitant]
     Dosage: 2 MG
     Route: 048
  9. LEVOTHYROXINE SODIUM [Concomitant]
     Dosage: 50 MCG
     Route: 048
  10. TEMESTA [Concomitant]
     Dosage: 1 MG
     Route: 048

REACTIONS (2)
  - VARICOSE VEIN [None]
  - VENOUS THROMBOSIS LIMB [None]
